FAERS Safety Report 24146164 (Version 1)
Quarter: 2024Q3

REPORT INFORMATION
  Report Type: Report from Study
  Country: ZA (occurrence: ZA)
  Receive Date: 20240729
  Receipt Date: 20240729
  Transmission Date: 20241016
  Serious: Yes (Other)
  Sender: ROCHE
  Company Number: ZA-ROCHE-10000034758

PATIENT
  Sex: Male

DRUGS (4)
  1. AVASTIN [Suspect]
     Active Substance: BEVACIZUMAB
     Indication: Diabetic retinal oedema
     Route: 050
  2. RANIBIZUMAB [Concomitant]
     Active Substance: RANIBIZUMAB
     Dates: start: 20231115
  3. RANIBIZUMAB [Concomitant]
     Active Substance: RANIBIZUMAB
     Dates: start: 20240405
  4. RANIBIZUMAB [Concomitant]
     Active Substance: RANIBIZUMAB
     Dates: start: 20230825

REACTIONS (2)
  - Off label use [Unknown]
  - Haemorrhage [Unknown]
